FAERS Safety Report 19998776 (Version 2)
Quarter: 2021Q4

REPORT INFORMATION
  Report Type: Spontaneous
  Country: US (occurrence: US)
  Receive Date: 20211027
  Receipt Date: 20211026
  Transmission Date: 20220303
  Serious: No
  Sender: FDA-Public Use
  Company Number: US-ROCHE-2732539

PATIENT
  Sex: Female

DRUGS (6)
  1. COTELLIC [Suspect]
     Active Substance: COBIMETINIB
     Indication: Metastasis
     Dosage: CYCLE: DAILY FOR 21 DAYS EVERY 28 DAY CYCLE
     Route: 048
     Dates: start: 20201114
  2. COTELLIC [Suspect]
     Active Substance: COBIMETINIB
     Indication: Malignant melanoma
  3. COTELLIC [Suspect]
     Active Substance: COBIMETINIB
     Indication: Metastases to central nervous system
  4. ZELBORAF [Suspect]
     Active Substance: VEMURAFENIB
     Indication: Metastasis
     Route: 048
     Dates: start: 20201114
  5. ZELBORAF [Suspect]
     Active Substance: VEMURAFENIB
     Indication: Malignant melanoma
  6. ZELBORAF [Suspect]
     Active Substance: VEMURAFENIB
     Indication: Metastases to central nervous system

REACTIONS (6)
  - Swelling [Unknown]
  - Limb mass [Unknown]
  - Arthralgia [Unknown]
  - Pain [Unknown]
  - Rash [Unknown]
  - Nausea [Unknown]
